FAERS Safety Report 20841528 (Version 2)
Quarter: 2022Q2

REPORT INFORMATION
  Report Type: Spontaneous
  Country: US (occurrence: US)
  Receive Date: 20220518
  Receipt Date: 20220525
  Transmission Date: 20220721
  Serious: No
  Sender: FDA-Public Use
  Company Number: US-UNITED THERAPEUTICS-UNT-2022-010586

PATIENT
  Age: 72 Year
  Sex: Female
  Weight: 78.186 kg

DRUGS (3)
  1. TYVASO [Suspect]
     Active Substance: TREPROSTINIL
     Indication: Pulmonary arterial hypertension
     Dosage: UNK
     Dates: start: 20210519
  2. TYVASO [Suspect]
     Active Substance: TREPROSTINIL
     Dosage: 54-96 ?G, QID
  3. OPSUMIT [Concomitant]
     Active Substance: MACITENTAN
     Indication: Product used for unknown indication
     Dosage: UNK
     Route: 065

REACTIONS (6)
  - Spinal column injury [Unknown]
  - Fall [Recovered/Resolved with Sequelae]
  - Rib fracture [Unknown]
  - Pain [Unknown]
  - Headache [Unknown]
  - Off label use [Unknown]

NARRATIVE: CASE EVENT DATE: 20220501
